FAERS Safety Report 22520463 (Version 2)
Quarter: 2025Q1

REPORT INFORMATION
  Report Type: Spontaneous
  Country: US (occurrence: US)
  Receive Date: 20230605
  Receipt Date: 20250123
  Transmission Date: 20250408
  Serious: Yes (Hospitalization)
  Sender: PADAGIS
  Company Number: US-PADAGIS-2023PAD00772

PATIENT

DRUGS (2)
  1. DICLOFENAC SODIUM [Suspect]
     Active Substance: DICLOFENAC SODIUM
     Indication: Arthralgia
     Route: 061
     Dates: end: 20230506
  2. LIDOCAINE [Concomitant]
     Active Substance: LIDOCAINE
     Indication: Product used for unknown indication
     Route: 065

REACTIONS (2)
  - Cardiovascular disorder [Unknown]
  - Drug ineffective for unapproved indication [Unknown]

NARRATIVE: CASE EVENT DATE: 20230505
